FAERS Safety Report 17023908 (Version 2)
Quarter: 2019Q4

REPORT INFORMATION
  Report Type: Spontaneous
  Country: HU (occurrence: HU)
  Receive Date: 20191113
  Receipt Date: 20191128
  Transmission Date: 20200122
  Serious: Yes (Hospitalization)
  Sender: FDA-Public Use
  Company Number: HU-BIOGEN-2019BI00804528

PATIENT
  Age: 12 Year
  Sex: Male

DRUGS (4)
  1. VIGANTOL [Concomitant]
     Indication: PRODUCT USED FOR UNKNOWN INDICATION
     Route: 065
  2. SPINRAZA [Suspect]
     Active Substance: NUSINERSEN
     Indication: SPINAL MUSCULAR ATROPHY
     Route: 065
  3. SPINRAZA [Suspect]
     Active Substance: NUSINERSEN
     Dosage: 7TH DOSE OF 12 MG/5ML 4-MONTHLY
     Route: 065
     Dates: start: 20191018
  4. NUTRINI MULTIFIBER [Concomitant]
     Indication: PRODUCT USED FOR UNKNOWN INDICATION
     Route: 065

REACTIONS (9)
  - Flatulence [Unknown]
  - Dehydration [Not Recovered/Not Resolved]
  - Constipation [Not Recovered/Not Resolved]
  - Abdominal pain [Not Recovered/Not Resolved]
  - Aspartate aminotransferase increased [Not Recovered/Not Resolved]
  - Procedural vomiting [Recovered/Resolved]
  - Pyelocaliectasis [Unknown]
  - Alanine aminotransferase increased [Not Recovered/Not Resolved]
  - Post lumbar puncture syndrome [Unknown]

NARRATIVE: CASE EVENT DATE: 20191025
